FAERS Safety Report 7298183-1 (Version None)
Quarter: 2011Q1

REPORT INFORMATION
  Report Type: 
  Country: None (occurrence: None)
  Receive Date: 20110214
  Receipt Date: 20110214
  Transmission Date: 20110831
  Serious: Yes (Death, Hospitalization, Other)
  Sender: FDA-Public Use
  Company Number: None

PATIENT
  Age: 44 Year
  Sex: Male
  Weight: 120.6568 kg

DRUGS (1)
  1. OXYCONTIN [Suspect]

REACTIONS (4)
  - URTICARIA [None]
  - VOMITING [None]
  - PRODUCT FORMULATION ISSUE [None]
  - MALAISE [None]
